FAERS Safety Report 10154879 (Version 2)
Quarter: 2014Q2

REPORT INFORMATION
  Report Type: Spontaneous
  Country: US (occurrence: US)
  Receive Date: 20140506
  Receipt Date: 20140514
  Transmission Date: 20141212
  Serious: Yes (Other)
  Sender: FDA-Public Use
  Company Number: US-IAC KOREA XML-USA-2014-0113413

PATIENT
  Age: 53 Year
  Sex: Male

DRUGS (7)
  1. OXYCONTIN (NDA 22-272) [Suspect]
     Indication: NECK INJURY
     Dosage: 80 MG, 4-6 HOURS PRN
     Route: 048
     Dates: start: 2000
  2. OXYCONTIN (NDA 22-272) [Suspect]
     Indication: NECK SURGERY
     Dosage: 80 MG, TAKE 4-5 TABLETS PER DAY
     Route: 048
     Dates: start: 201404
  3. OXYCONTIN (NDA 22-272) [Suspect]
     Indication: CELLULITIS
  4. OXYCONTIN (NDA 22-272) [Suspect]
     Indication: SKIN ULCER
  5. OXYCONTIN (NDA 22-272) [Suspect]
     Indication: PAIN
  6. MORPHINE SULFATE (SIMILAR TO NDA 19-516) [Suspect]
     Indication: CELLULITIS
     Dosage: 60 MG, Q8H
     Route: 048
  7. MORPHINE SULFATE (SIMILAR TO NDA 19-516) [Suspect]
     Indication: SKIN ULCER

REACTIONS (7)
  - Skin ulcer [Not Recovered/Not Resolved]
  - Cardiovascular disorder [Unknown]
  - Infection [Unknown]
  - Pain in extremity [Unknown]
  - Pain [Unknown]
  - Inadequate analgesia [Unknown]
  - Unevaluable event [Unknown]
